FAERS Safety Report 7647364-3 (Version None)
Quarter: 2011Q3

REPORT INFORMATION
  Report Type: 
  Country: None (occurrence: None)
  Receive Date: 20110726
  Receipt Date: 20110712
  Transmission Date: 20111222
  Serious: Yes (Hospitalization, Other)
  Sender: FDA-Public Use
  Company Number: 2011SP021229

PATIENT
  Age: 52 Year
  Sex: Female

DRUGS (6)
  1. MARAVIROC [Concomitant]
  2. PEG-INTRON [Suspect]
     Indication: PRODUCT USED FOR UNKNOWN INDICATION
  3. RIBAVIRIN [Suspect]
     Indication: PRODUCT USED FOR UNKNOWN INDICATION
  4. DARUNAVIR [Concomitant]
  5. BOCEPREVIR (SCH-503034) [Suspect]
     Indication: HEPATITIS C
     Dosage: 800 MG;QD;PO
     Route: 048
     Dates: start: 20110412, end: 20110505
  6. LAMIVUDINE [Concomitant]

REACTIONS (10)
  - PANCYTOPENIA [None]
  - LOWER RESPIRATORY TRACT INFECTION [None]
  - STOMATITIS [None]
  - STAPHYLOCOCCAL PHARYNGITIS [None]
  - EAR INFECTION STAPHYLOCOCCAL [None]
  - TYMPANIC MEMBRANE PERFORATION [None]
  - MOUTH ULCERATION [None]
  - MUCOSAL INFLAMMATION [None]
  - DYSPHAGIA [None]
  - DEAFNESS UNILATERAL [None]
